FAERS Safety Report 5006099-6 (Version None)
Quarter: 2006Q2

REPORT INFORMATION
  Report Type: 
  Country: None (occurrence: None)
  Receive Date: 20060518
  Receipt Date: 20050928
  Transmission Date: 20061013
  Serious: Yes (Disabling)
  Sender: FDA-Public Use
  Company Number: US-MERCK-0509USA04483

PATIENT
  Age: 45 Year
  Sex: Female
  Weight: 55 kg

DRUGS (3)
  1. VIOXX [Suspect]
     Indication: MYALGIA
     Route: 048
     Dates: start: 19991001, end: 20040101
  2. TOPROL-XL [Concomitant]
     Route: 065
  3. WELLBUTRIN [Concomitant]
     Route: 065

REACTIONS (12)
  - AMNESIA [None]
  - ARRHYTHMIA [None]
  - DIZZINESS [None]
  - EMOTIONAL DISTRESS [None]
  - FIBROMYALGIA [None]
  - HEADACHE [None]
  - LACUNAR INFARCTION [None]
  - SINUSITIS [None]
  - TEMPOROMANDIBULAR JOINT SYNDROME [None]
  - TRANSIENT ISCHAEMIC ATTACK [None]
  - VENOUS ANGIOMA OF BRAIN [None]
  - VERTIGO [None]
